FAERS Safety Report 9196083 (Version 1)
Quarter: 2013Q1

REPORT INFORMATION
  Report Type: Spontaneous
  Country: US (occurrence: None)
  Receive Date: 20120705
  Receipt Date: 20120705
  Transmission Date: 20140127
  Serious: No
  Sender: FDA-Public Use
  Company Number: US-CYPR-2012-000040

PATIENT
  Sex: Female
  Weight: 96 kg

DRUGS (2)
  1. CLOPIDOGREL [Suspect]
     Indication: ANTIPLATELET THERAPY
     Route: 048
     Dates: start: 20110308
  2. ASPIRIN [Suspect]
     Indication: CORONARY ARTERY DISEASE
     Route: 048
     Dates: start: 20100305

REACTIONS (1)
  - B-cell lymphoma [None]
